FAERS Safety Report 8544431-7 (Version None)
Quarter: 2012Q3

REPORT INFORMATION
  Report Type: 
  Country: None (occurrence: None)
  Receive Date: 20120727
  Receipt Date: 20120530
  Transmission Date: 20120928
  Serious: Yes (Death, Other)
  Sender: FDA-Public Use
  Company Number: US-MPIJNJ-2012-00586

PATIENT

DRUGS (4)
  1. DEXAMETHASONE [Suspect]
     Indication: MULTIPLE MYELOMA
     Dosage: 40 MG, CYCLIC
     Route: 048
  2. ACYCLOVIR [Concomitant]
     Indication: PROPHYLAXIS
  3. VELCADE [Suspect]
     Indication: MULTIPLE MYELOMA
     Dosage: 1.3 MG/M2, CYCLIC
     Route: 042
  4. ACYCLOVIR [Concomitant]
     Indication: HERPES ZOSTER

REACTIONS (2)
  - ADRENAL CARCINOMA [None]
  - DEATH [None]
